FAERS Safety Report 8086958-0 (Version None)
Quarter: 2012Q1

REPORT INFORMATION
  Report Type: 
  Country: None (occurrence: None)
  Receive Date: 20120128
  Receipt Date: 20110520
  Transmission Date: 20120608
  Serious: No
  Sender: FDA-Public Use
  Company Number: US-ABBOTT-11P-163-0727411-00

PATIENT
  Age: 15 Year
  Sex: Female

DRUGS (4)
  1. METHOTREXATE [Concomitant]
     Indication: JUVENILE ARTHRITIS
     Route: 050
  2. HYDROXYCH [Concomitant]
     Indication: JUVENILE ARTHRITIS
     Dosage: 1 1/2 TABLETS DAILY
  3. HUMIRA [Suspect]
     Indication: JUVENILE ARTHRITIS
     Dates: start: 20110511
  4. FOLIC ACID [Concomitant]
     Indication: SUPPLEMENTATION THERAPY

REACTIONS (2)
  - INJECTION SITE PAPULE [None]
  - INJECTION SITE PAIN [None]
